FAERS Safety Report 9877130 (Version 3)
Quarter: 2014Q2

REPORT INFORMATION
  Report Type: Spontaneous
  Country: ES (occurrence: ES)
  Receive Date: 20140206
  Receipt Date: 20140610
  Transmission Date: 20141212
  Serious: Yes (Death)
  Sender: FDA-Public Use
  Company Number: ES-ROCHE-1344723

PATIENT
  Age: 18 Year
  Sex: Female
  Weight: 68 kg

DRUGS (6)
  1. XOLAIR [Suspect]
     Indication: ASTHMA
     Route: 058
     Dates: start: 201209, end: 20131220
  2. FLIXOTIDE [Suspect]
     Indication: ASTHMA
     Route: 065
     Dates: start: 2011
  3. DACORTIN [Suspect]
     Indication: ASTHMA
     Dosage: 10 MG TO 30 MG
     Route: 048
  4. SERETIDE [Suspect]
     Indication: ASTHMA
     Dosage: 50 TO 500
     Route: 065
     Dates: start: 2010
  5. SINGULAIR [Suspect]
     Indication: ASTHMA
     Route: 048
     Dates: start: 2010
  6. TERBASMIN [Suspect]
     Indication: ASTHMA
     Dosage: INHALATION
     Route: 065
     Dates: start: 2009

REACTIONS (3)
  - Sudden death [Fatal]
  - Asthmatic crisis [Fatal]
  - Asthma [Unknown]
